FAERS Safety Report 10067865 (Version 1)
Quarter: 2014Q2

REPORT INFORMATION
  Report Type: Report from Study
  Country: AR (occurrence: AR)
  Receive Date: 20140409
  Receipt Date: 20140409
  Transmission Date: 20141212
  Serious: Yes (Other)
  Sender: FDA-Public Use
  Company Number: PHHY2014AR042437

PATIENT
  Sex: Female

DRUGS (2)
  1. DIOVAN [Suspect]
     Indication: HYPERTENSION
     Dosage: 1 DF (160 MG), DAILY
     Route: 048
  2. HYGROTON [Suspect]
     Indication: HYPERTENSION
     Dosage: 1 DF (50 MG), DAILY
     Route: 048
     Dates: end: 201311

REACTIONS (3)
  - Blood pressure increased [Unknown]
  - Oedema peripheral [Unknown]
  - Oedema [Unknown]
